FAERS Safety Report 8219955-2 (Version None)
Quarter: 2012Q1

REPORT INFORMATION
  Report Type: 
  Country: None (occurrence: None)
  Receive Date: 20120319
  Receipt Date: 20120314
  Transmission Date: 20120608
  Serious: Yes (Hospitalization)
  Sender: FDA-Public Use
  Company Number: AR-ROCHE-1049314

PATIENT
  Sex: Female
  Weight: 75 kg

DRUGS (2)
  1. PREGABALIN [Concomitant]
     Indication: RHEUMATOID ARTHRITIS
     Route: 048
  2. MABTHERA [Suspect]
     Indication: RHEUMATOID ARTHRITIS
     Route: 042
     Dates: start: 20110401

REACTIONS (3)
  - ASPHYXIA [None]
  - FATIGUE [None]
  - DYSPNOEA [None]
